FAERS Safety Report 18150139 (Version 2)
Quarter: 2020Q3

REPORT INFORMATION
  Report Type: Report from Study
  Country: US (occurrence: US)
  Receive Date: 20200814
  Receipt Date: 20200819
  Transmission Date: 20201103
  Serious: Yes (Hospitalization, Other)
  Sender: FDA-Public Use
  Company Number: US-ASTRAZENECA-2020SF01479

PATIENT
  Sex: Female

DRUGS (1)
  1. FASENRA [Suspect]
     Active Substance: BENRALIZUMAB
     Indication: ASTHMA
     Dosage: 30MG AT WEEKS 0, 4, AND 8, THEN EVERY 8 WEEKS THEREAFTER
     Route: 058
     Dates: start: 202007

REACTIONS (2)
  - COVID-19 [Unknown]
  - Asthenia [Unknown]
